FAERS Safety Report 20948464 (Version 5)
Quarter: 2022Q4

REPORT INFORMATION
  Report Type: Report from Study
  Country: IN (occurrence: None)
  Receive Date: 20220612
  Receipt Date: 20221102
  Transmission Date: 20230113
  Serious: Yes (Hospitalization)
  Sender: FDA-Public Use
  Company Number: IN-ROCHE-3110496

PATIENT
  Age: 54 Year
  Sex: Female
  Weight: 51.6 kg

DRUGS (6)
  1. BEVACIZUMAB [Suspect]
     Active Substance: BEVACIZUMAB
     Indication: Ovarian epithelial cancer
     Dosage: DATES WHEN DRUG REGIMEN ALTERED: 01/JUN/2022?11/MAY/2022: CYCLE 4
     Route: 042
     Dates: start: 20220330
  2. CARBOPLATIN [Suspect]
     Active Substance: CARBOPLATIN
     Indication: Ovarian epithelial cancer
     Dosage: DATES WHEN DRUG REGIMEN ALTERED: 01-JUN-2022?512.5 MG IN 250 ML 5% D: 11/MAY/2022: CYCLE 4?30/MAR/20
     Route: 042
     Dates: start: 20220309
  3. PACLITAXEL [Suspect]
     Active Substance: PACLITAXEL
     Indication: Ovarian epithelial cancer
     Dosage: DATES WHEN DRUG REGIMEN ALTERED: 01-JUN-2022?30/MAR/2022: CYCLE 2?11/MAY/2022: 248.5 IN 500 ML NORMA
     Route: 042
     Dates: start: 20220309
  4. INSULIN ASPART [Concomitant]
     Active Substance: INSULIN ASPART
     Dosage: 30/70?DOSE : 22 U
     Dates: start: 20220304, end: 20220407
  5. TENELIGLIPTIN [Concomitant]
     Active Substance: TENELIGLIPTIN
     Dosage: ONGOING
     Dates: start: 20220407
  6. FILGRASTIM [Concomitant]
     Active Substance: FILGRASTIM
     Dosage: 600 MCG
     Dates: start: 20220601, end: 20220608

REACTIONS (3)
  - Leukopenia [Recovered/Resolved]
  - Anaemia [Recovered/Resolved]
  - Thrombocytopenia [Recovered/Resolved]

NARRATIVE: CASE EVENT DATE: 20220601
